FAERS Safety Report 6192183-0 (Version None)
Quarter: 2009Q2

REPORT INFORMATION
  Report Type: 
  Country: None (occurrence: None)
  Receive Date: 20090515
  Receipt Date: 20090515
  Transmission Date: 20091009
  Serious: Yes (Death)
  Sender: FDA-Public Use
  Company Number: BR-B.I. PHARMACEUTICALS,INC./RIDGEFIELD-2009-BR-00474BR

PATIENT
  Age: 76 Year
  Sex: Male

DRUGS (7)
  1. SPIRIVA [Suspect]
     Indication: RESPIRATORY FAILURE
     Dosage: 18MCG
     Route: 055
     Dates: end: 20090201
  2. ANCORON [Concomitant]
     Indication: CARDIAC FAILURE
  3. ACIDO ACETILSALICILICO [Concomitant]
     Indication: ANTICOAGULANT THERAPY
  4. SERETIDE [Concomitant]
     Indication: RESPIRATORY FAILURE
  5. ARADOIS [Concomitant]
     Indication: HYPERTENSION
  6. SINVASCOR [Concomitant]
     Indication: BLOOD CHOLESTEROL
  7. ZYLORIC [Concomitant]
     Indication: BLOOD URIC ACID

REACTIONS (2)
  - CARDIAC FAILURE [None]
  - RESPIRATORY FAILURE [None]
